FAERS Safety Report 20423212 (Version 1)
Quarter: 2022Q1

REPORT INFORMATION
  Report Type: Spontaneous
  Country: US (occurrence: None)
  Receive Date: 20220203
  Receipt Date: 20220203
  Transmission Date: 20220424
  Serious: Yes (Other)
  Sender: FDA-Public Use
  Company Number: None

PATIENT
  Age: 70 Year
  Sex: Female
  Weight: 69.75 kg

DRUGS (4)
  1. RESTASIS [Suspect]
     Active Substance: CYCLOSPORINE
     Indication: Dry eye
     Dosage: OTHER QUANTITY : 1 DROP(S);?FREQUENCY : TWICE A DAY;?
     Route: 047
     Dates: start: 20210820
  2. CALCIUM CITRATE [Concomitant]
     Active Substance: CALCIUM CITRATE
  3. CHONDROITIN SULFATE A\GLUCOSAMINE [Concomitant]
     Active Substance: CHONDROITIN SULFATE A\GLUCOSAMINE
  4. CENTRUM WOMEN MULTIGUMMIES [Concomitant]

REACTIONS (15)
  - Eye irritation [None]
  - Fatigue [None]
  - Headache [None]
  - Pain [None]
  - SARS-CoV-2 test negative [None]
  - Pyrexia [None]
  - Tremor [None]
  - Hyperhidrosis [None]
  - Pain [None]
  - Ear pain [None]
  - Abdominal pain [None]
  - Nausea [None]
  - Bacterial infection [None]
  - Eye discharge [None]
  - Product container issue [None]

NARRATIVE: CASE EVENT DATE: 20211129
